FAERS Safety Report 8360582-4 (Version None)
Quarter: 2012Q2

REPORT INFORMATION
  Report Type: 
  Country: None (occurrence: None)
  Receive Date: 20120515
  Receipt Date: 20120511
  Transmission Date: 20120825
  Serious: Yes (Life-Threatening, Other)
  Sender: FDA-Public Use
  Company Number: PHHY2012FR040263

PATIENT
  Sex: Male

DRUGS (3)
  1. CLOZAPINE [Suspect]
     Indication: DEMENTIA
     Dosage: 0.5 DF, UNK
     Dates: start: 20120417, end: 20120417
  2. OXAZEPAM [Suspect]
     Indication: DEMENTIA
     Dosage: 3 DF, DAILY
     Dates: start: 20120417, end: 20120417
  3. GALANTAMINE HYDROBROMIDE [Concomitant]
     Indication: DEMENTIA
     Dosage: 1 DF, UNK

REACTIONS (9)
  - AGITATION [None]
  - BLOOD CREATININE INCREASED [None]
  - TACHYCARDIA [None]
  - DYSPNOEA [None]
  - COMA [None]
  - COMA SCALE ABNORMAL [None]
  - LUNG DISORDER [None]
  - GRAND MAL CONVULSION [None]
  - UNRESPONSIVE TO STIMULI [None]
